FAERS Safety Report 5079811-8 (Version None)
Quarter: 2006Q3

REPORT INFORMATION
  Report Type: 
  Country: None (occurrence: None)
  Receive Date: 20060720
  Receipt Date: 20050524
  Transmission Date: 20061208
  Serious: Yes (Hospitalization, Other)
  Sender: FDA-Public Use
  Company Number: 2005079258

PATIENT
  Sex: Male
  Weight: 72.5755 kg

DRUGS (2)
  1. CELEBREX [Suspect]
     Indication: SPINAL COLUMN STENOSIS
     Dosage: (1 IN 1 D),ORAL
     Route: 048
  2. HYDROCHLOROTHIAIZIDE (HYDROCHLOROTHIAZIDE) [Concomitant]

REACTIONS (3)
  - BLOOD POTASSIUM DECREASED [None]
  - DIVERTICULITIS [None]
  - DRUG INEFFECTIVE [None]
